FAERS Safety Report 5353715-5 (Version None)
Quarter: 2007Q2

REPORT INFORMATION
  Report Type: 
  Country: None (occurrence: None)
  Receive Date: 20070612
  Receipt Date: 20070601
  Transmission Date: 20071010
  Serious: Yes (Other)
  Sender: FDA-Public Use
  Company Number: US-AMGEN-US227419

PATIENT
  Sex: Male

DRUGS (1)
  1. ENBREL [Suspect]
     Indication: AUTOIMMUNE DISORDER
     Route: 065
     Dates: start: 20070522

REACTIONS (1)
  - INTERNATIONAL NORMALISED RATIO INCREASED [None]
